APPROVED DRUG PRODUCT: LENALIDOMIDE
Active Ingredient: LENALIDOMIDE
Strength: 25MG
Dosage Form/Route: CAPSULE;ORAL
Application: A210154 | Product #004 | TE Code: AB
Applicant: ZYDUS PHARMACEUTICALS USA INC
Approved: Sep 12, 2022 | RLD: No | RS: No | Type: RX